FAERS Safety Report 25879270 (Version 1)
Quarter: 2025Q4

REPORT INFORMATION
  Report Type: Spontaneous
  Country: US (occurrence: US)
  Receive Date: 20251003
  Receipt Date: 20251003
  Transmission Date: 20260118
  Serious: No
  Sender: BRISTOL-MYERS SQUIBB COMPANY
  Company Number: US-BRISTOL-MYERS SQUIBB COMPANY-2025-135163

PATIENT

DRUGS (1)
  1. NELVUTAMIG [Suspect]
     Active Substance: NELVUTAMIG
     Indication: Product used for unknown indication

REACTIONS (1)
  - Product preparation error [Unknown]
